FAERS Safety Report 20068536 (Version 1)
Quarter: 2021Q4

REPORT INFORMATION
  Report Type: Other
  Country: MA (occurrence: None)
  Receive Date: 20211115
  Receipt Date: 20211115
  Transmission Date: 20220303
  Serious: Yes (Hospitalization, Other)
  Sender: FDA-Public Use
  Company Number: MA-Navinta LLC-000206

PATIENT
  Age: 25 Year
  Sex: Female

DRUGS (1)
  1. NICARDIPINE [Suspect]
     Active Substance: NICARDIPINE
     Indication: Hypertension

REACTIONS (3)
  - Drug resistance [Unknown]
  - Hypertension [Unknown]
  - Exposure during pregnancy [Unknown]
